FAERS Safety Report 19439181 (Version 2)
Quarter: 2021Q3

REPORT INFORMATION
  Report Type: Spontaneous
  Country: FI (occurrence: FI)
  Receive Date: 20210619
  Receipt Date: 20210723
  Transmission Date: 20211014
  Serious: Yes (Hospitalization)
  Sender: FDA-Public Use
  Company Number: FI-JNJFOC-20210638413

PATIENT
  Age: 51 Year
  Sex: Female

DRUGS (14)
  1. VENLAFAXINE KRKA [Concomitant]
     Dosage: 150 MG, QD
     Route: 048
     Dates: start: 20201230
  2. XARELTO [Suspect]
     Active Substance: RIVAROXABAN
     Indication: VENOUS THROMBOSIS
     Dosage: 15 MG, BID
     Route: 048
     Dates: start: 20210530, end: 20210609
  3. ONDANSETRON HAMELN [Concomitant]
     Dosage: UNK
     Route: 042
     Dates: start: 20210609
  4. MELATONIN ORION [Concomitant]
     Active Substance: MELATONIN
     Dosage: UNK
     Route: 048
     Dates: start: 20210201
  5. KETIPINOR [Concomitant]
     Active Substance: QUETIAPINE FUMARATE
     Dosage: UNK
     Dates: start: 20210401
  6. TRAMAL RETARD [Concomitant]
     Active Substance: TRAMADOL
     Dosage: 200 MG, QD
     Route: 048
     Dates: start: 20200325
  7. TRAMAL [Concomitant]
     Active Substance: TRAMADOL
     Dosage: UNK
     Route: 048
     Dates: start: 20200512
  8. SIRDALUD [Concomitant]
     Active Substance: TIZANIDINE
     Dosage: UNK
     Route: 048
     Dates: start: 20190730
  9. PROPRAL [Concomitant]
     Active Substance: PROPRANOLOL HYDROCHLORIDE
     Dosage: UNK
     Route: 048
     Dates: start: 20200610
  10. SOMAC [Concomitant]
     Active Substance: PANTOPRAZOLE SODIUM
     Dosage: 20 MG, QD
     Dates: start: 20200610
  11. AVAMYS [Concomitant]
     Active Substance: FLUTICASONE FUROATE
     Dosage: 110 UG, QD
     Dates: start: 20210111
  12. VENLAFAXINE ORION [Concomitant]
     Dosage: 75 MG, QD
     Route: 048
     Dates: start: 20201125
  13. PANADOL FORTE [PARACETAMOL] [Concomitant]
     Dosage: UNK
     Route: 048
     Dates: start: 20200903
  14. PREGABALIN KRKA [Concomitant]
     Active Substance: PREGABALIN
     Dosage: 300 MG, QD
     Route: 048
     Dates: start: 20200908

REACTIONS (1)
  - Pulmonary embolism [Recovered/Resolved]

NARRATIVE: CASE EVENT DATE: 20210609
